FAERS Safety Report 16803606 (Version 1)
Quarter: 2019Q3

REPORT INFORMATION
  Report Type: Spontaneous
  Country: US (occurrence: GB)
  Receive Date: 20190913
  Receipt Date: 20190913
  Transmission Date: 20191005
  Serious: Yes (Other)
  Sender: FDA-Public Use
  Company Number: US-AXELLIA-002661

PATIENT
  Age: 68 Year
  Sex: Female

DRUGS (1)
  1. VANCOMYCIN [Suspect]
     Active Substance: VANCOMYCIN
     Indication: ENDOPHTHALMITIS
     Dosage: 1.0 MG/0.1 ML OF INTRACAMERAL

REACTIONS (4)
  - Retinal vasculitis [Recovered/Resolved]
  - Type IV hypersensitivity reaction [Recovered/Resolved]
  - Retinal haemorrhage [Recovered/Resolved]
  - Iris neovascularisation [Recovered/Resolved]
